FAERS Safety Report 7892326-4 (Version None)
Quarter: 2011Q4

REPORT INFORMATION
  Report Type: 
  Country: None (occurrence: None)
  Receive Date: 20111101
  Receipt Date: 20111018
  Transmission Date: 20120403
  Serious: Yes (Hospitalization, Other)
  Sender: FDA-Public Use
  Company Number: JPI-P-013239

PATIENT
  Age: 67 Year
  Sex: Female
  Weight: 72.5755 kg

DRUGS (28)
  1. LAMOTRIGINE [Concomitant]
  2. TRAZODONE HYDROCHLORIDE [Concomitant]
  3. LEVOTHYROXINE SODIUM [Concomitant]
  4. IBANDRONATE SODIUM [Concomitant]
  5. MODAFINIL [Concomitant]
  6. FLUTICASONE AND SALMETEROL [Concomitant]
  7. ALBUTEROL [Concomitant]
  8. DULOXETIME HYDROCHLORIDE [Concomitant]
  9. XYREM [Suspect]
     Indication: RAPID EYE MOVEMENTS SLEEP ABNORMAL
     Dosage: SEE IMAGE
     Route: 048
     Dates: start: 20071206
  10. XYREM [Suspect]
     Indication: NARCOLEPSY
     Dosage: SEE IMAGE
     Route: 048
     Dates: start: 20071206
  11. XYREM [Suspect]
     Indication: DYSSOMNIA
     Dosage: SEE IMAGE
     Route: 048
     Dates: start: 20071206
  12. XYREM [Suspect]
     Indication: SLEEP DISORDER
     Dosage: SEE IMAGE
     Route: 048
     Dates: start: 20071206
  13. XYREM [Suspect]
     Indication: RAPID EYE MOVEMENTS SLEEP ABNORMAL
     Dosage: SEE IMAGE
     Route: 048
     Dates: end: 20100301
  14. XYREM [Suspect]
     Indication: NARCOLEPSY
     Dosage: SEE IMAGE
     Route: 048
     Dates: end: 20100301
  15. XYREM [Suspect]
     Indication: DYSSOMNIA
     Dosage: SEE IMAGE
     Route: 048
     Dates: end: 20100301
  16. XYREM [Suspect]
     Indication: SLEEP DISORDER
     Dosage: SEE IMAGE
     Route: 048
     Dates: end: 20100301
  17. XYREM [Suspect]
     Indication: RAPID EYE MOVEMENTS SLEEP ABNORMAL
     Dosage: SEE IMAGE
     Route: 048
     Dates: start: 20100301
  18. XYREM [Suspect]
     Indication: NARCOLEPSY
     Dosage: SEE IMAGE
     Route: 048
     Dates: start: 20100301
  19. XYREM [Suspect]
     Indication: DYSSOMNIA
     Dosage: SEE IMAGE
     Route: 048
     Dates: start: 20100301
  20. XYREM [Suspect]
     Indication: SLEEP DISORDER
     Dosage: SEE IMAGE
     Route: 048
     Dates: start: 20100301
  21. FLUOXETINE HCL [Concomitant]
  22. CARVEDILOL [Concomitant]
  23. LISINOPRIL [Concomitant]
  24. FLUTICASONE PROPIONATE [Concomitant]
  25. MONTELUKAST SODIUM [Concomitant]
  26. SPIRONOLACTONE [Concomitant]
  27. DIGOXIN [Concomitant]
  28. CALCIUM [Concomitant]

REACTIONS (20)
  - CONCUSSION [None]
  - PNEUMONIA [None]
  - HAEMORRHAGE INTRACRANIAL [None]
  - FALL [None]
  - SKULL FRACTURE [None]
  - HERPES ZOSTER [None]
  - BALANCE DISORDER [None]
  - NAUSEA [None]
  - STRESS [None]
  - DRUG INEFFECTIVE [None]
  - LYMPHADENOPATHY [None]
  - CEREBRAL HAEMORRHAGE [None]
  - BREAST CANCER [None]
  - FATIGUE [None]
  - MIDDLE INSOMNIA [None]
  - CONDITION AGGRAVATED [None]
  - SQUAMOUS CELL CARCINOMA [None]
  - CARDIAC FAILURE CONGESTIVE [None]
  - DIPLOPIA [None]
  - BASAL CELL CARCINOMA [None]
